FAERS Safety Report 14522087 (Version 1)
Quarter: 2018Q1

REPORT INFORMATION
  Report Type: Report from Study
  Country: US (occurrence: US)
  Receive Date: 20180212
  Receipt Date: 20180212
  Transmission Date: 20180509
  Serious: Yes (Hospitalization, Other)
  Sender: FDA-Public Use
  Company Number: US-AMAG PHARMACEUTICALS, INC.-AMAG201701594

PATIENT
  Age: 0 Year
  Sex: Male
  Weight: 2.86 kg

DRUGS (1)
  1. MAKENA [Suspect]
     Active Substance: HYDROXYPROGESTERONE CAPROATE
     Indication: FOETAL EXPOSURE DURING PREGNANCY
     Dosage: UNK
     Route: 064
     Dates: start: 20161226, end: 20170522

REACTIONS (6)
  - Platelet count increased [Unknown]
  - Tyrosinaemia [Unknown]
  - Hypothyroidism [Unknown]
  - Neonatal respiratory distress syndrome [Unknown]
  - Premature baby [Unknown]
  - ABO incompatibility [Unknown]

NARRATIVE: CASE EVENT DATE: 201705
